FAERS Safety Report 12831749 (Version 2)
Quarter: 2016Q4

REPORT INFORMATION
  Report Type: Spontaneous
  Country: US (occurrence: US)
  Receive Date: 20161010
  Receipt Date: 20161010
  Transmission Date: 20170207
  Serious: No
  Sender: FDA-Public Use
  Company Number: US-ASTRAZENECA-2016SF05758

PATIENT
  Sex: Female

DRUGS (2)
  1. MOVANTIK [Suspect]
     Active Substance: NALOXEGOL OXALATE
     Route: 048
  2. LINZESS [Concomitant]
     Active Substance: LINACLOTIDE

REACTIONS (2)
  - Constipation [Not Recovered/Not Resolved]
  - Intentional product misuse [Unknown]
